FAERS Safety Report 5511931-3 (Version None)
Quarter: 2007Q4

REPORT INFORMATION
  Report Type: 
  Country: None (occurrence: None)
  Receive Date: 20071109
  Receipt Date: 20071029
  Transmission Date: 20080405
  Serious: Yes (Other)
  Sender: FDA-Public Use
  Company Number: GB-PFIZER INC-2007091791

PATIENT
  Sex: Male

DRUGS (1)
  1. AMLODIPINE [Suspect]
     Route: 065

REACTIONS (1)
  - INFERTILITY MALE [None]
